FAERS Safety Report 7960044-X (Version None)
Quarter: 2011Q4

REPORT INFORMATION
  Report Type: 
  Country: None (occurrence: None)
  Receive Date: 20111206
  Receipt Date: 20111125
  Transmission Date: 20120403
  Serious: Yes (Hospitalization)
  Sender: FDA-Public Use
  Company Number: PHHY2011EC104508

PATIENT
  Sex: Male

DRUGS (4)
  1. PROSTAL [Concomitant]
     Dosage: ONE PER DAY
  2. CLONAZEPAM [Concomitant]
     Dosage: 2 MG, (ONE PILL AT NIGHT)
  3. OMEPRAZOLE [Concomitant]
     Dosage: TWO PER DAY
  4. EXFORGE HCT [Suspect]
     Indication: HYPERTENSION
     Dosage: 1 DF, (160/12.5/10 MG ONE TABLET)
     Route: 048
     Dates: start: 20050725

REACTIONS (2)
  - BACK DISORDER [None]
  - MUSCULOSKELETAL DISCOMFORT [None]
